FAERS Safety Report 8806007 (Version 7)
Quarter: 2013Q1

REPORT INFORMATION
  Report Type: Report from Study
  Country: JP (occurrence: JP)
  Receive Date: 20120925
  Receipt Date: 20130228
  Transmission Date: 20140127
  Serious: Yes (Hospitalization, Other)
  Sender: FDA-Public Use
  Company Number: JP-ABBOTT-12P-087-0941414-00

PATIENT
  Age: 30 Year
  Sex: Female
  Weight: 52.9 kg

DRUGS (14)
  1. HUMIRA [Suspect]
     Indication: COLITIS ULCERATIVE
     Route: 058
     Dates: start: 20090723, end: 20090915
  2. HUMIRA [Suspect]
     Dates: start: 20090916, end: 20091014
  3. HUMIRA [Suspect]
     Dates: start: 20091015, end: 20110928
  4. HUMIRA [Suspect]
     Dates: start: 20110929, end: 20120509
  5. PREDNISOLONE [Concomitant]
     Indication: COLITIS ULCERATIVE
     Route: 048
     Dates: start: 20090326, end: 20120606
  6. PREDNISOLONE [Concomitant]
     Route: 048
     Dates: start: 20120607, end: 20120613
  7. PREDNISOLONE [Concomitant]
     Route: 048
     Dates: start: 20120614, end: 20120620
  8. PREDNISOLONE [Concomitant]
     Route: 048
     Dates: start: 20120621, end: 20120627
  9. PREDNISOLONE [Concomitant]
     Route: 048
     Dates: start: 20120628, end: 20120704
  10. PREDNISOLONE [Concomitant]
     Route: 048
     Dates: start: 20120705, end: 20120820
  11. PREDNISOLONE [Concomitant]
     Route: 048
     Dates: start: 20120821, end: 20120924
  12. PREDNISOLONE [Concomitant]
     Route: 048
     Dates: start: 20120925
  13. BIOFERMIN [Concomitant]
     Indication: FUNCTIONAL GASTROINTESTINAL DISORDER
     Route: 048
     Dates: start: 20090402
  14. SAIREITO (CHINESE HERBAL MEDICINE) [Concomitant]
     Indication: INFLAMMATION
     Route: 048
     Dates: start: 20080313

REACTIONS (2)
  - Rectal cancer [Recovered/Resolved]
  - Colitis ulcerative [Recovered/Resolved]
